FAERS Safety Report 24332385 (Version 2)
Quarter: 2024Q4

REPORT INFORMATION
  Report Type: Report from Study
  Country: ZA (occurrence: ZA)
  Receive Date: 20240918
  Receipt Date: 20241217
  Transmission Date: 20250114
  Serious: Yes (Other)
  Sender: ALEXION PHARMACEUTICALS
  Company Number: 2024A213024

PATIENT
  Age: 84 Year

DRUGS (10)
  1. DAPAGLIFLOZIN PROPANEDIOL [Suspect]
     Active Substance: DAPAGLIFLOZIN PROPANEDIOL
     Indication: Diabetes mellitus
     Dosage: 10 MILLIGRAM, UNK
  2. ISMO [Concomitant]
     Active Substance: ISOSORBIDE MONONITRATE
     Indication: Angina pectoris
     Dosage: 20 MILLIGRAM, UNK
  3. DUTASTERIDE\TAMSULOSIN HYDROCHLORIDE [Concomitant]
     Active Substance: DUTASTERIDE\TAMSULOSIN HYDROCHLORIDE
     Indication: Prostatomegaly
     Dosage: UNK
  4. MAGNESIUM CHLORIDE [Concomitant]
     Active Substance: MAGNESIUM CHLORIDE
  5. SANDOZ CO AMOXYCLAV [Concomitant]
     Dosage: 375 MILLIGRAM, UNK
  6. MIRABEGRON [Concomitant]
     Active Substance: MIRABEGRON
     Indication: Muscle relaxant therapy
     Dosage: 25 MILLIGRAM, UNK
  7. ACTRAPHANE FLEXPEN [Concomitant]
     Indication: Diabetes mellitus
     Dosage: UNK
  8. CLOPIDOGREL BISULFATE [Concomitant]
     Active Substance: CLOPIDOGREL BISULFATE
     Indication: Thrombosis
     Dosage: 75 MILLIGRAM, UNK
  9. PRESICARD [Concomitant]
     Indication: Hypertension
     Dosage: 2.5 MILLIGRAM, UNK
  10. RIVAROXABAN [Concomitant]
     Active Substance: RIVAROXABAN
     Indication: Thrombosis
     Dosage: 15 MILLIGRAM, UNK

REACTIONS (1)
  - Deafness [Unknown]
